FAERS Safety Report 6837134-8 (Version None)
Quarter: 2010Q3

REPORT INFORMATION
  Report Type: 
  Country: None (occurrence: None)
  Receive Date: 20100713
  Receipt Date: 20070605
  Transmission Date: 20110219
  Serious: Yes (Hospitalization, Other)
  Sender: FDA-Public Use
  Company Number: US-PFIZER INC-2007037475

PATIENT
  Sex: Male
  Weight: 111.4 kg

DRUGS (3)
  1. CHANTIX [Suspect]
     Indication: SMOKING CESSATION THERAPY
     Dates: start: 20070417
  2. TAMSULOSIN HYDROCHLORIDE [Concomitant]
  3. SYNTHROID [Concomitant]

REACTIONS (1)
  - HEART RATE INCREASED [None]
